FAERS Safety Report 7103853-1 (Version None)
Quarter: 2010Q4

REPORT INFORMATION
  Report Type: 
  Country: None (occurrence: None)
  Receive Date: 20101115
  Receipt Date: 20101109
  Transmission Date: 20110411
  Serious: Yes (Other)
  Sender: FDA-Public Use
  Company Number: BR-PFIZER INC-2010143709

PATIENT
  Sex: Male

DRUGS (1)
  1. ADVIL EXTRA ALIVIO [Suspect]
     Indication: ANALGESIC THERAPY
     Dosage: 400 MG, UNK
     Route: 048
     Dates: start: 20101108

REACTIONS (5)
  - CAPSULE ISSUE [None]
  - COUGH [None]
  - HYPOAESTHESIA ORAL [None]
  - THROAT IRRITATION [None]
  - WRONG TECHNIQUE IN DRUG USAGE PROCESS [None]
